FAERS Safety Report 7520330-4 (Version None)
Quarter: 2011Q2

REPORT INFORMATION
  Report Type: 
  Country: None (occurrence: None)
  Receive Date: 20110602
  Receipt Date: 20110308
  Transmission Date: 20111010
  Serious: Yes (Other)
  Sender: FDA-Public Use
  Company Number: PHHY2011CN19219

PATIENT
  Sex: Male

DRUGS (2)
  1. ASPIRIN [Suspect]
  2. NSAID'S [Suspect]

REACTIONS (14)
  - BRONCHOPULMONARY ASPERGILLOSIS ALLERGIC [None]
  - EMPHYSEMA [None]
  - OBSTRUCTIVE AIRWAYS DISORDER [None]
  - WHEEZING [None]
  - SINUSITIS [None]
  - DYSPNOEA [None]
  - COUGH [None]
  - PYREXIA [None]
  - BRONCHIECTASIS [None]
  - MALAISE [None]
  - CHRONIC OBSTRUCTIVE PULMONARY DISEASE [None]
  - SPUTUM RETENTION [None]
  - PURULENT DISCHARGE [None]
  - CHOKING [None]
